FAERS Safety Report 8058742-5 (Version None)
Quarter: 2012Q1

REPORT INFORMATION
  Report Type: 
  Country: None (occurrence: None)
  Receive Date: 20120120
  Receipt Date: 20120109
  Transmission Date: 20120608
  Serious: Yes (Hospitalization)
  Sender: FDA-Public Use
  Company Number: US-BAYER-2011-038394

PATIENT
  Age: 38 Year
  Sex: Female
  Weight: 86.168 kg

DRUGS (7)
  1. YASMIN [Suspect]
     Indication: PREMENSTRUAL SYNDROME
  2. DROSPIRENONE AND ETHINYL ESTRADIOL [Suspect]
     Indication: CONTRACEPTION
     Dosage: UNK
     Dates: start: 20050101, end: 20090101
  3. DROSPIRENONE AND ETHINYL ESTRADIOL [Suspect]
     Indication: PREMENSTRUAL SYNDROME
  4. YASMIN [Suspect]
     Indication: CONTRACEPTION
     Dosage: UNK
     Dates: start: 20050101, end: 20090101
  5. OMEPRAZOLE [Concomitant]
  6. ALBUTEROL [Concomitant]
  7. AMBIEN [Concomitant]

REACTIONS (11)
  - CHOLELITHIASIS [None]
  - FLATULENCE [None]
  - DYSPEPSIA [None]
  - ANXIETY [None]
  - ABDOMINAL DISTENSION [None]
  - DEPRESSION [None]
  - CHOLECYSTITIS ACUTE [None]
  - SCAR [None]
  - DIARRHOEA [None]
  - ABDOMINAL PAIN [None]
  - CONSTIPATION [None]
